FAERS Safety Report 9960291 (Version 1)
Quarter: 2014Q1

REPORT INFORMATION
  Report Type: Spontaneous
  Country: US (occurrence: None)
  Receive Date: 20140228
  Receipt Date: 20140228
  Transmission Date: 20141002
  Serious: No
  Sender: FDA-Public Use
  Company Number: None

PATIENT
  Sex: 0
  Weight: 20.41 kg

DRUGS (1)
  1. GENERIC CONCERTA [Suspect]
     Indication: ATTENTION DEFICIT/HYPERACTIVITY DISORDER
     Dosage: CONCERTA 27 MG QAM PO
     Route: 048
     Dates: start: 201309

REACTIONS (2)
  - Drug effect decreased [None]
  - Product colour issue [None]
